FAERS Safety Report 4604895-8 (Version None)
Quarter: 2005Q1

REPORT INFORMATION
  Report Type: 
  Country: None (occurrence: None)
  Receive Date: 20050310
  Receipt Date: 20050310
  Transmission Date: 20050727
  Serious: Yes (Other)
  Sender: FDA-Public Use
  Company Number: None

PATIENT
  Age: 63 Year
  Sex: Female
  Weight: 66.6788 kg

DRUGS (1)
  1. BENEFIBER      NOVARTIS [Suspect]
     Dosage: 1 TABLESPOON   DAY     ORAL
     Route: 048
     Dates: start: 20050308, end: 20050308

REACTIONS (3)
  - HEADACHE [None]
  - HYPERSENSITIVITY [None]
  - PARTIAL SEIZURES [None]
